FAERS Safety Report 21272132 (Version 5)
Quarter: 2022Q3

REPORT INFORMATION
  Report Type: Spontaneous
  Country: CA (occurrence: CA)
  Receive Date: 20220830
  Receipt Date: 20220913
  Transmission Date: 20221027
  Serious: Yes (Death, Other)
  Sender: FDA-Public Use
  Company Number: CA-PFIZER INC-PV202200052914

PATIENT
  Age: 65 Year
  Sex: Female

DRUGS (2)
  1. IBRANCE [Suspect]
     Active Substance: PALBOCICLIB
     Indication: Breast cancer
     Dosage: UNK
     Dates: start: 20200821
  2. LETROZOLE [Concomitant]
     Active Substance: LETROZOLE
     Indication: Breast cancer metastatic
     Dosage: UNK

REACTIONS (2)
  - Neoplasm progression [Fatal]
  - Brain oedema [Fatal]

NARRATIVE: CASE EVENT DATE: 20220101
